FAERS Safety Report 6706052-8 (Version None)
Quarter: 2010Q2

REPORT INFORMATION
  Report Type: 
  Country: None (occurrence: None)
  Receive Date: 20100430
  Receipt Date: 20100430
  Transmission Date: 20101027
  Serious: Yes (Other)
  Sender: FDA-Public Use
  Company Number: None

PATIENT
  Age: 45 Year
  Sex: Female
  Weight: 56.6996 kg

DRUGS (2)
  1. PREPARATION H NONE LISTED WYETH [Suspect]
     Indication: HAEMORRHOIDS
     Dosage: UP TO 4 X'S A DAY TOP
     Route: 061
     Dates: start: 20100401, end: 20100402
  2. CVS HEMORRHOIDAL CREAM NONE LISTED CVS [Suspect]
     Indication: HAEMORRHOIDS
     Dosage: UP TO 4 X'S DAY TOP
     Route: 061
     Dates: start: 20100402, end: 20100403

REACTIONS (3)
  - CAUSTIC INJURY [None]
  - PAIN [None]
  - REACTION TO DRUG EXCIPIENTS [None]
